FAERS Safety Report 6165302-X (Version None)
Quarter: 2009Q2

REPORT INFORMATION
  Report Type: 
  Country: None (occurrence: None)
  Receive Date: 20090421
  Receipt Date: 20090421
  Transmission Date: 20091009
  Serious: No
  Sender: FDA-Public Use
  Company Number: None

PATIENT
  Age: 28 Year
  Sex: Female
  Weight: 74.8435 kg

DRUGS (2)
  1. SERTRALINE [Suspect]
     Indication: DEPRESSION
     Dosage: 100MG ONCE PER DAY PO
     Route: 048
  2. SERTRALINE [Suspect]
     Indication: SOCIAL PHOBIA
     Dosage: 100MG ONCE PER DAY PO
     Route: 048

REACTIONS (13)
  - AFFECT LABILITY [None]
  - ANXIETY [None]
  - DIZZINESS [None]
  - FEAR [None]
  - FEELING COLD [None]
  - HYPERHIDROSIS [None]
  - INSOMNIA [None]
  - NAUSEA [None]
  - PANIC REACTION [None]
  - SENSORY DISTURBANCE [None]
  - UNEVALUABLE EVENT [None]
  - VERTIGO [None]
  - WITHDRAWAL SYNDROME [None]
